FAERS Safety Report 20660376 (Version 1)
Quarter: 2022Q1

REPORT INFORMATION
  Report Type: Spontaneous
  Country: US (occurrence: None)
  Receive Date: 20220331
  Receipt Date: 20220331
  Transmission Date: 20220423
  Serious: No
  Sender: FDA-Public Use
  Company Number: US-FRESENIUS KABI-FK202203784

PATIENT
  Age: 64 Year
  Sex: Female
  Weight: 71 kg

DRUGS (2)
  1. CISPLATIN [Suspect]
     Active Substance: CISPLATIN
     Indication: Lung neoplasm malignant
     Dosage: ONCE EVERY 3 WEEKS
     Route: 042
     Dates: start: 20220310, end: 20220310
  2. CISPLATIN [Suspect]
     Active Substance: CISPLATIN
     Dosage: ONCE EVERY 3 WEEKS
     Route: 042
     Dates: start: 20220310, end: 20220310

REACTIONS (4)
  - Cough [Recovered/Resolved]
  - Dysphonia [Recovered/Resolved]
  - Back pain [Recovered/Resolved]
  - Vision blurred [Recovered/Resolved]

NARRATIVE: CASE EVENT DATE: 20220310
